FAERS Safety Report 4690704-8 (Version None)
Quarter: 2005Q2

REPORT INFORMATION
  Report Type: 
  Country: None (occurrence: None)
  Receive Date: 20050613
  Receipt Date: 20050530
  Transmission Date: 20051028
  Serious: Yes (Life-Threatening, Hospitalization)
  Sender: FDA-Public Use
  Company Number: 214489

PATIENT
  Age: 61 Year
  Sex: Female
  Weight: 75 kg

DRUGS (1)
  1. MABTHERA              (RITUXIMAB) [Suspect]
     Indication: B-CELL LYMPHOMA
     Dosage: 637 MG, INTRAVENOUS
     Route: 042
     Dates: start: 20050512

REACTIONS (8)
  - BLOOD LACTIC ACID INCREASED [None]
  - BRAIN OEDEMA [None]
  - BRONCHOSPASM [None]
  - COMA [None]
  - DYSPNOEA [None]
  - INFUSION RELATED REACTION [None]
  - LEUKOCYTOSIS [None]
  - PSYCHOMOTOR HYPERACTIVITY [None]
